FAERS Safety Report 8133972-2 (Version None)
Quarter: 2012Q1

REPORT INFORMATION
  Report Type: 
  Country: None (occurrence: None)
  Receive Date: 20120213
  Receipt Date: 20120131
  Transmission Date: 20120608
  Serious: Yes (Other)
  Sender: FDA-Public Use
  Company Number: NO-MYLANLABS-2012S1002255

PATIENT
  Age: 74 Year
  Sex: Female

DRUGS (3)
  1. SOTALOL HYDROCHLORIDE [Suspect]
     Indication: ATRIAL FIBRILLATION
     Dosage: 1 DF - 1/2 OF A TABLET MORNINGS AND 1/4 TABLET EVENININGS
     Dates: start: 20020101, end: 20100222
  2. ATENOLOL [Suspect]
     Indication: PRODUCT USED FOR UNKNOWN INDICATION
     Dates: start: 19980101
  3. SOTALOL HYDROCHLORIDE [Suspect]
     Indication: HYPERTENSION
     Dosage: 1 DF - 1/2 OF A TABLET MORNINGS AND 1/4 TABLET EVENININGS
     Dates: start: 20020101, end: 20100222

REACTIONS (1)
  - DEAFNESS [None]
